FAERS Safety Report 7866862-0 (Version None)
Quarter: 2011Q4

REPORT INFORMATION
  Report Type: 
  Country: None (occurrence: None)
  Receive Date: 20111028
  Receipt Date: 20111021
  Transmission Date: 20120403
  Serious: Yes (Other)
  Sender: FDA-Public Use
  Company Number: US-ABBOTT-11P-163-0868089-00

PATIENT
  Age: 52 Year
  Sex: Female

DRUGS (11)
  1. HUMIRA [Suspect]
     Indication: CROHN'S DISEASE
     Route: 058
     Dates: start: 20110601
  2. HUMALOG [Concomitant]
     Indication: PRODUCT USED FOR UNKNOWN INDICATION
     Dosage: SLIDING SCALE
  3. GLUCOPHAGE [Concomitant]
     Indication: DIABETES MELLITUS
     Dosage: 2-TABS 500MG EVERY DAY
  4. SYNTHROID [Concomitant]
     Indication: PRODUCT USED FOR UNKNOWN INDICATION
  5. ASPIRIN [Concomitant]
     Indication: CARDIAC DISORDER
  6. DOMPERIDONE [Concomitant]
     Indication: IMPAIRED GASTRIC EMPTYING
  7. LANTUS [Concomitant]
     Indication: PRODUCT USED FOR UNKNOWN INDICATION
     Dosage: HS
  8. TOPROL-XL [Concomitant]
     Indication: CORONARY ARTERY DISEASE
  9. ELAVIL [Concomitant]
     Indication: ANXIETY
     Dosage: AT NIGHT
  10. REQUIP [Concomitant]
     Indication: RESTLESS LEGS SYNDROME
  11. TEMAZEPAM [Concomitant]
     Indication: PRODUCT USED FOR UNKNOWN INDICATION

REACTIONS (3)
  - CHILLS [None]
  - TRIGGER FINGER [None]
  - NASOPHARYNGITIS [None]
